FAERS Safety Report 7283753-7 (Version None)
Quarter: 2011Q1

REPORT INFORMATION
  Report Type: 
  Country: None (occurrence: None)
  Receive Date: 20110209
  Receipt Date: 20110201
  Transmission Date: 20110831
  Serious: Yes (Death)
  Sender: FDA-Public Use
  Company Number: TN-SANOFI-AVENTIS-2011SA007333

PATIENT
  Age: 77 Year
  Sex: Male

DRUGS (8)
  1. PLAVIX [Suspect]
     Indication: CORONARY ARTERIAL STENT INSERTION
     Route: 048
     Dates: start: 20100709, end: 20101204
  2. FAMODINE [Concomitant]
     Route: 048
     Dates: end: 20101204
  3. ASPIRIN [Concomitant]
     Route: 048
     Dates: end: 20101204
  4. PLAVIX [Suspect]
     Indication: ACUTE CORONARY SYNDROME
     Route: 048
     Dates: start: 20100709, end: 20101204
  5. AMLOR [Concomitant]
     Route: 048
     Dates: end: 20101204
  6. LASIX [Concomitant]
     Route: 048
     Dates: end: 20101204
  7. GLUCOPHAGE [Concomitant]
     Route: 048
     Dates: end: 20101204
  8. CORVASAL [Concomitant]
     Route: 048
     Dates: end: 20101204

REACTIONS (1)
  - CARDIAC ARREST [None]
